FAERS Safety Report 13213203 (Version 1)
Quarter: 2017Q1

REPORT INFORMATION
  Report Type: Report from Study
  Country: None (occurrence: SE)
  Receive Date: 20170209
  Receipt Date: 20170209
  Transmission Date: 20170428
  Serious: Yes (Other)
  Sender: FDA-Public Use
  Company Number: SE-ABBVIE-17P-150-1861971-00

PATIENT
  Sex: Male

DRUGS (2)
  1. DUODOPA [Suspect]
     Active Substance: CARBIDOPA\LEVODOPA
     Dosage: MD: 3ML, CD: 4.0 ML/H
     Route: 050
     Dates: start: 20150513
  2. DUODOPA [Suspect]
     Active Substance: CARBIDOPA\LEVODOPA
     Indication: PARKINSON^S DISEASE
     Route: 050
     Dates: start: 20150428, end: 20150513

REACTIONS (5)
  - Hypokinesia [Unknown]
  - Incorrect dose administered [Unknown]
  - Fall [Not Recovered/Not Resolved]
  - Hyperkinesia [Not Recovered/Not Resolved]
  - Petit mal epilepsy [Not Recovered/Not Resolved]
